FAERS Safety Report 20012254 (Version 1)
Quarter: 2021Q4

REPORT INFORMATION
  Report Type: Spontaneous
  Country: US (occurrence: US)
  Receive Date: 20211029
  Receipt Date: 20211029
  Transmission Date: 20220303
  Serious: No
  Sender: FDA-Public Use
  Company Number: US-SANOFI-00827243

PATIENT
  Sex: Female

DRUGS (3)
  1. ZANTAC [Suspect]
     Active Substance: RANITIDINE HYDROCHLORIDE
     Indication: Gastrooesophageal reflux disease
     Dosage: UNK
  2. ZANTAC [Suspect]
     Active Substance: RANITIDINE HYDROCHLORIDE
     Indication: Diverticulitis
  3. VITAMIN D NOS [Concomitant]
     Active Substance: VITAMIN D NOS
     Dosage: 50,000 UNITS OF VITAMIN D

REACTIONS (3)
  - Visual impairment [Unknown]
  - Nasopharyngitis [Unknown]
  - Product use in unapproved indication [Unknown]
